FAERS Safety Report 17146240 (Version 3)
Quarter: 2020Q2

REPORT INFORMATION
  Report Type: Spontaneous
  Country: US (occurrence: US)
  Receive Date: 20191212
  Receipt Date: 20200623
  Transmission Date: 20200713
  Serious: Yes (Hospitalization, Other)
  Sender: FDA-Public Use
  Company Number: US-ASTRAZENECA-2019SF76211

PATIENT
  Age: 67 Year
  Sex: Female
  Weight: 71.2 kg

DRUGS (2)
  1. SYMBICORT [Suspect]
     Active Substance: BUDESONIDE\FORMOTEROL FUMARATE DIHYDRATE
     Indication: BRONCHITIS
     Dosage: 2 PUFFS TWICE A DAY
     Route: 055
  2. FASENRA [Suspect]
     Active Substance: BENRALIZUMAB
     Indication: ASTHMA
     Dosage: EVERY 4 WEEKS FOR FIRST 3 INJECTIONS, THEN 30 MG/ML EVERY 8 WEEKS AFTER
     Route: 058
     Dates: start: 20191021

REACTIONS (10)
  - Headache [Unknown]
  - Failure to thrive [Unknown]
  - Suicidal ideation [Unknown]
  - Mental disorder [Unknown]
  - Taste disorder [Unknown]
  - Feeling abnormal [Unknown]
  - Cognitive disorder [Unknown]
  - Malaise [Unknown]
  - Asthma [Unknown]
  - Herpes zoster [Unknown]

NARRATIVE: CASE EVENT DATE: 2011
